FAERS Safety Report 24811745 (Version 1)
Quarter: 2025Q1

REPORT INFORMATION
  Report Type: Spontaneous
  Country: FR (occurrence: FR)
  Receive Date: 20250106
  Receipt Date: 20250106
  Transmission Date: 20250409
  Serious: Yes (Other)
  Sender: REGENERON
  Company Number: None

PATIENT
  Age: 63 Year
  Sex: Female

DRUGS (1)
  1. LIBTAYO [Suspect]
     Active Substance: CEMIPLIMAB-RWLC
     Indication: Adenocarcinoma of the cervix
     Route: 042
     Dates: start: 202404

REACTIONS (1)
  - Lymph node tuberculosis [Unknown]

NARRATIVE: CASE EVENT DATE: 20241108
